FAERS Safety Report 16874618 (Version 1)
Quarter: 2019Q4

REPORT INFORMATION
  Report Type: Spontaneous
  Country: US (occurrence: US)
  Receive Date: 20191001
  Receipt Date: 20191001
  Transmission Date: 20200122
  Serious: Yes (Hospitalization)
  Sender: FDA-Public Use
  Company Number: US-TEVA-2019-US-1115545

PATIENT
  Age: 31 Year
  Sex: Male

DRUGS (4)
  1. CLONAZEPAM. [Suspect]
     Active Substance: CLONAZEPAM
     Indication: DRUG ABUSE
     Route: 045
  2. LEVAMISOLE [Suspect]
     Active Substance: LEVAMISOLE
     Dosage: AN ADULTERANT IN COCAINE
     Route: 045
  3. BUPRENORPHINE/NALOXONE [Suspect]
     Active Substance: BUPRENORPHINE\NALOXONE
     Indication: DRUG ABUSE
     Route: 045
  4. PHENIBUT [Suspect]
     Active Substance: DIETARY SUPPLEMENT
     Indication: DRUG ABUSE
     Route: 045

REACTIONS (3)
  - Drug abuse [Unknown]
  - Purpura fulminans [Unknown]
  - Vasculitis [Unknown]
